FAERS Safety Report 5835677-7 (Version None)
Quarter: 2008Q3

REPORT INFORMATION
  Report Type: 
  Country: None (occurrence: None)
  Receive Date: 20080731
  Receipt Date: 20080717
  Transmission Date: 20090109
  Serious: Yes (Other)
  Sender: FDA-Public Use
  Company Number: CHPA2006US13750

PATIENT
  Age: 47 Year
  Sex: Male
  Weight: 83.9 kg

DRUGS (1)
  1. THERAFLU FLU AND SORE THROAT (NCH) (PHENIRAMINE MALEATE, PHENYLEPHRINE [Suspect]
     Indication: OROPHARYNGEAL PAIN
     Dosage: 1 DF, BID, ORAL
     Route: 048
     Dates: start: 20061229, end: 20061230

REACTIONS (21)
  - ANXIETY [None]
  - ARTHRALGIA [None]
  - CHOKING [None]
  - CONTUSION [None]
  - DYSPNOEA [None]
  - GROIN PAIN [None]
  - HYPERSENSITIVITY [None]
  - HYPOAESTHESIA [None]
  - JOINT SWELLING [None]
  - MEDICATION TAMPERING [None]
  - OCULAR HYPERAEMIA [None]
  - OEDEMA PERIPHERAL [None]
  - PAIN [None]
  - PHARMACEUTICAL PRODUCT COMPLAINT [None]
  - PHARYNGEAL OEDEMA [None]
  - RHINORRHOEA [None]
  - SCAR [None]
  - SWELLING [None]
  - SWELLING FACE [None]
  - SWOLLEN TONGUE [None]
  - URTICARIA [None]
